FAERS Safety Report 12845453 (Version 1)
Quarter: 2016Q4

REPORT INFORMATION
  Report Type: Spontaneous
  Country: US (occurrence: US)
  Receive Date: 20161013
  Receipt Date: 20161013
  Transmission Date: 20170207
  Serious: No
  Sender: FDA-Public Use
  Company Number: US-JAZZ-2016-US-013695

PATIENT
  Sex: Female
  Weight: 95.96 kg

DRUGS (29)
  1. XYREM [Suspect]
     Active Substance: SODIUM OXYBATE
     Indication: NARCOLEPSY
     Dosage: 2.25 G, BID
     Route: 048
     Dates: start: 200406, end: 200407
  2. DHEA [Concomitant]
     Active Substance: PRASTERONE
  3. MODAFINIL. [Concomitant]
     Active Substance: MODAFINIL
  4. CALCIUM + VITAMIN D [Concomitant]
     Active Substance: CALCIUM\VITAMIN D
  5. TOBRAMYCIN. [Concomitant]
     Active Substance: TOBRAMYCIN
  6. AMLODIPINE [Concomitant]
     Active Substance: AMLODIPINE BESYLATE
  7. PRAMIPEXOLE. [Concomitant]
     Active Substance: PRAMIPEXOLE
  8. POTASSIUM GLUCONATE [Concomitant]
     Active Substance: POTASSIUM GLUCONATE
  9. GLUCOSAMINE [Concomitant]
     Active Substance: GLUCOSAMINE
  10. LEVOTHYROXINE. [Concomitant]
     Active Substance: LEVOTHYROXINE
  11. PROVIGIL [Concomitant]
     Active Substance: MODAFINIL
  12. ZINC ACETATE [Concomitant]
     Active Substance: ZINC ACETATE
  13. MAGNESIUM [Concomitant]
     Active Substance: MAGNESIUM
  14. GLUCOSAMINE/CHONDROITIN [Concomitant]
  15. COCONUT OIL [Concomitant]
     Active Substance: COCONUT OIL
  16. VITAMIN C TR [Concomitant]
  17. XYREM [Suspect]
     Active Substance: SODIUM OXYBATE
     Dosage: DOSE ADJUSTMENTS
     Route: 048
     Dates: start: 200407, end: 201509
  18. STOOL SOFTENER (DOCUSATE CALCIUM) [Concomitant]
     Active Substance: DOCUSATE CALCIUM
  19. VITAMIN D3 [Concomitant]
     Active Substance: CHOLECALCIFEROL
  20. ASPIRIN. [Concomitant]
     Active Substance: ASPIRIN
  21. XYREM [Suspect]
     Active Substance: SODIUM OXYBATE
     Dosage: 3.5 G, BID
     Route: 048
     Dates: start: 201509
  22. NATURE-THROID [Concomitant]
     Active Substance: THYROID, PORCINE
  23. VITAMIN B12 [Concomitant]
     Active Substance: CYANOCOBALAMIN
  24. MULTIVITAMIN [Concomitant]
     Active Substance: VITAMINS
  25. LISINOPRIL. [Concomitant]
     Active Substance: LISINOPRIL
  26. ATENOLOL. [Concomitant]
     Active Substance: ATENOLOL
  27. PHENTERMINE. [Concomitant]
     Active Substance: PHENTERMINE
  28. HYALURONIC ACID [Concomitant]
     Active Substance: HYALURONIC ACID
  29. MIRAPEX ER [Concomitant]
     Active Substance: PRAMIPEXOLE DIHYDROCHLORIDE

REACTIONS (1)
  - Nocturia [Unknown]
